FAERS Safety Report 4895800-8 (Version None)
Quarter: 2005Q4

REPORT INFORMATION
  Report Type: 
  Country: None (occurrence: None)
  Receive Date: 20051229
  Receipt Date: 20050415
  Transmission Date: 20060501
  Serious: Yes (Hospitalization)
  Sender: FDA-Public Use
  Company Number: 1781-148

PATIENT
  Age: 40 Year
  Sex: Female
  Weight: 75 kg

DRUGS (2)
  1. VENOFER [Suspect]
     Indication: IRON DEFICIENCY
     Dosage: 200-500 MG IV OVER 1 HOUR
     Route: 042
  2. VENOFER [Suspect]
     Indication: RENAL FAILURE CHRONIC
     Dosage: 200-500 MG IV OVER 1 HOUR
     Route: 042

REACTIONS (1)
  - ANAPHYLACTIC REACTION [None]
